FAERS Safety Report 5305230-2 (Version None)
Quarter: 2007Q2

REPORT INFORMATION
  Report Type: 
  Country: None (occurrence: None)
  Receive Date: 20070424
  Receipt Date: 20070418
  Transmission Date: 20071010
  Serious: Yes (Life-Threatening, Hospitalization, Other)
  Sender: FDA-Public Use
  Company Number: US-RB-005945-07

PATIENT
  Sex: Female
  Weight: 66.15 kg

DRUGS (5)
  1. SUBOXONE [Suspect]
  2. KLONOPIN [Concomitant]
     Route: 048
  3. BACLOFEN [Concomitant]
  4. OXYCODONE HCL [Concomitant]
  5. XANAX [Concomitant]

REACTIONS (2)
  - ELECTROCARDIOGRAM QT CORRECTED INTERVAL PROLONGED [None]
  - SUICIDE ATTEMPT [None]
